FAERS Safety Report 9458955 (Version 2)
Quarter: 2013Q3

REPORT INFORMATION
  Report Type: Spontaneous
  Country: US (occurrence: US)
  Receive Date: 20130814
  Receipt Date: 20130918
  Transmission Date: 20140515
  Serious: Yes (Other)
  Sender: FDA-Public Use
  Company Number: US-FRI-1000047599

PATIENT
  Age: 56 Year
  Sex: Female
  Weight: 131 kg

DRUGS (25)
  1. VIIBRYD [Suspect]
     Indication: DEPRESSION
     Dosage: 10 MG
     Route: 048
     Dates: start: 2013, end: 2013
  2. VIIBRYD [Suspect]
     Dosage: 20 MG
     Route: 048
     Dates: start: 2013, end: 2013
  3. VIIBRYD [Suspect]
     Indication: DEPRESSION
     Dosage: 40 MG
     Route: 048
     Dates: start: 2013, end: 2013
  4. VIIBRYD [Suspect]
     Indication: DEPRESSION
     Dosage: 20 MG
     Route: 048
     Dates: start: 2013
  5. VALIUM [Concomitant]
     Dosage: PRN
  6. KLOR-CON [Concomitant]
     Dosage: 10 MILLEQUIVALENTS
  7. CLARINEX [Concomitant]
     Dosage: 5 MG
  8. BAYER LOW DOSE ASPIRIN [Concomitant]
     Dosage: 81 MG
  9. FUROSEMIDE [Concomitant]
     Dosage: 40 MG
     Dates: start: 2003
  10. LISINOPRIL [Concomitant]
     Dosage: 30 MG
     Dates: start: 2003
  11. PANTOPRAZOLE [Concomitant]
     Dosage: 40 MG
  12. MONTELUKAST [Concomitant]
     Dosage: 10 MG
     Dates: start: 1973
  13. TOPIRAMATE [Concomitant]
     Dosage: 25 MG
     Dates: start: 2012
  14. INTUNIV ER [Concomitant]
     Dosage: 1 MG
     Dates: start: 2012
  15. VERAMYST [Concomitant]
     Dates: start: 2008
  16. DIAZEPAM [Concomitant]
     Dates: start: 2012
  17. PRO AIR [Concomitant]
     Dates: start: 1973
  18. ADVAIR [Concomitant]
  19. IPRATROPIUM BROMIDE [Concomitant]
  20. ALBUTEROL SULFATE [Concomitant]
  21. LIDODERM [Concomitant]
     Indication: PAIN
     Dates: start: 201303
  22. ZOLPIDEM TARTRATE [Concomitant]
     Dosage: 10 MG
  23. CLONAZEPAM [Concomitant]
  24. ACETOMINOPHEN #3 [Concomitant]
  25. CARISOPRODOL [Concomitant]
     Dosage: 3 TIMES A DAY AS NEEDED

REACTIONS (5)
  - Pulmonary embolism [Recovered/Resolved]
  - Atrial fibrillation [Not Recovered/Not Resolved]
  - Ankle fracture [Recovering/Resolving]
  - Nausea [Recovered/Resolved]
  - Diarrhoea [Recovered/Resolved]
